FAERS Safety Report 25467538 (Version 1)
Quarter: 2025Q2

REPORT INFORMATION
  Report Type: Spontaneous
  Country: US (occurrence: None)
  Receive Date: 20250621
  Receipt Date: 20250621
  Transmission Date: 20250717
  Serious: No
  Sender: FDA-CTU
  Company Number: None

PATIENT
  Age: 42 Year
  Sex: Female
  Weight: 141.3 kg

DRUGS (4)
  1. QELBREE [Suspect]
     Active Substance: VILOXAZINE HYDROCHLORIDE
     Dosage: OTHER QUANTITY : 1 CAPSULE(S);?FREQUENCY : AT BEDTIME;?
     Route: 048
     Dates: start: 20250401, end: 20250620
  2. Wellbutrin 200mg [Concomitant]
  3. allophone 5mg [Concomitant]
  4. hydrochlorothiazide 2.5mg [Concomitant]

REACTIONS (6)
  - Headache [None]
  - Hot flush [None]
  - Irritability [None]
  - Nausea [None]
  - Crying [None]
  - Therapy interrupted [None]

NARRATIVE: CASE EVENT DATE: 20250621
